FAERS Safety Report 10583296 (Version 1)
Quarter: 2014Q4

REPORT INFORMATION
  Report Type: Spontaneous
  Country: US (occurrence: None)
  Receive Date: 20141112
  Receipt Date: 20141112
  Transmission Date: 20150529
  Serious: Yes (Death)
  Sender: FDA-Public Use
  Company Number: CC400236785

PATIENT
  Age: 72 Year
  Sex: Male
  Weight: 67 kg

DRUGS (3)
  1. TICAGRELOR [Concomitant]
     Active Substance: TICAGRELOR
  2. HEPARIN [Suspect]
     Active Substance: HEPARIN SODIUM
     Dosage: 18UNITS/KG/HR, IV
     Route: 042
  3. ASPIRIN. [Concomitant]
     Active Substance: ASPIRIN

REACTIONS (8)
  - Hypertension [None]
  - Subarachnoid haemorrhage [None]
  - Brain midline shift [None]
  - Activated partial thromboplastin time prolonged [None]
  - Subdural haematoma [None]
  - Mydriasis [None]
  - Brain herniation [None]
  - Unresponsive to stimuli [None]

NARRATIVE: CASE EVENT DATE: 20141028
